FAERS Safety Report 9337252 (Version 1)
Quarter: 2013Q2

REPORT INFORMATION
  Report Type: Spontaneous
  Country: FR (occurrence: FR)
  Receive Date: 20130607
  Receipt Date: 20130607
  Transmission Date: 20140414
  Serious: Yes (Hospitalization, Other)
  Sender: FDA-Public Use
  Company Number: FR-PFIZER INC-2013166530

PATIENT
  Age: 76 Year
  Sex: Female

DRUGS (11)
  1. EFFEXOR LP [Suspect]
     Indication: DEPRESSION
     Dosage: 75 MG, DAILY
     Route: 048
     Dates: start: 201208, end: 201208
  2. EFFEXOR LP [Suspect]
     Dosage: 37.5 MG, DAILY
     Route: 048
     Dates: start: 201208
  3. IXEL [Suspect]
     Indication: DEPRESSION
     Dosage: 50 MG, 1X/DAY
     Route: 048
     Dates: end: 20120815
  4. LYSANXIA [Suspect]
     Indication: ANXIETY
     Dosage: 10 MG, 1X/DAY
     Route: 048
     Dates: start: 201208, end: 201208
  5. LYSANXIA [Suspect]
     Dosage: UNK
     Route: 048
     Dates: start: 201208, end: 20120820
  6. FEMARA [Concomitant]
     Dosage: UNK
  7. STALEVO [Concomitant]
     Dosage: UNK
  8. GUTRON [Concomitant]
     Dosage: UNK
  9. CACIT D3 [Concomitant]
     Dosage: UNK
  10. DAFALGAN [Concomitant]
     Dosage: UNK
  11. DUPHALAC [Concomitant]
     Dosage: UNK

REACTIONS (3)
  - Confusional state [Not Recovered/Not Resolved]
  - Dementia [Unknown]
  - Cognitive disorder [Unknown]
